FAERS Safety Report 4649242-0 (Version None)
Quarter: 2005Q2

REPORT INFORMATION
  Report Type: 
  Country: None (occurrence: None)
  Receive Date: 20050429
  Receipt Date: 20050419
  Transmission Date: 20051028
  Serious: Yes (Other)
  Sender: FDA-Public Use
  Company Number: US-JNJFOC-20050106005

PATIENT
  Sex: Female
  Weight: 53 kg

DRUGS (6)
  1. REMICADE [Suspect]
     Route: 042
  2. REMICADE [Suspect]
     Route: 042
  3. SULFASALAZINE [Concomitant]
     Indication: COLITIS
     Dates: end: 20041101
  4. IMURAN [Concomitant]
     Indication: COLITIS
     Dates: end: 20041101
  5. PREDNISONE TAB [Concomitant]
     Indication: COLITIS
     Dates: end: 20041101
  6. PRILOSEC [Concomitant]
     Dates: start: 20041101, end: 20041201

REACTIONS (4)
  - ANTIPHOSPHOLIPID SYNDROME [None]
  - COLITIS [None]
  - LABORATORY TEST ABNORMAL [None]
  - THROMBOSIS [None]
